FAERS Safety Report 9284557 (Version 1)
Quarter: 2013Q2

REPORT INFORMATION
  Report Type: Spontaneous
  Country: PR (occurrence: US)
  Receive Date: 20130511
  Receipt Date: 20130511
  Transmission Date: 20140414
  Serious: No
  Sender: FDA-Public Use
  Company Number: PR-009507513-1305USA000988

PATIENT
  Sex: Male

DRUGS (1)
  1. ZIOPTAN [Suspect]
     Indication: GLAUCOMA
     Dosage: ONE DROP IN EACH EYE IN THE EVENING
     Route: 047

REACTIONS (1)
  - Eye inflammation [Recovered/Resolved]
